FAERS Safety Report 4528224-3 (Version None)
Quarter: 2004Q4

REPORT INFORMATION
  Report Type: 
  Country: None (occurrence: None)
  Receive Date: 20041130
  Receipt Date: 20040817
  Transmission Date: 20050328
  Serious: No
  Sender: FDA-Public Use
  Company Number: 702081

PATIENT
  Age: 54 Year
  Sex: Male
  Weight: 119.7496 kg

DRUGS (4)
  1. AMEVIVE [Suspect]
     Indication: PSORIASIS
     Dosage: 15 MG QW IM
     Route: 030
     Dates: start: 20040602
  2. PROPOXYPHENE [Concomitant]
  3. NEURONTIN [Concomitant]
  4. PLAVIX [Concomitant]

REACTIONS (1)
  - PSORIASIS [None]
